FAERS Safety Report 18871690 (Version 1)
Quarter: 2021Q1

REPORT INFORMATION
  Report Type: Spontaneous
  Country: US (occurrence: US)
  Receive Date: 20210210
  Receipt Date: 20210210
  Transmission Date: 20210420
  Serious: No
  Sender: FDA-Public Use
  Company Number: US-SA-2021SA038059

PATIENT
  Age: 80 Year
  Sex: Male

DRUGS (1)
  1. ENOXAPARIN SODIUM. [Suspect]
     Active Substance: ENOXAPARIN SODIUM
     Indication: THROMBOSIS
     Dosage: 135 MG, QD
     Dates: start: 20201128

REACTIONS (2)
  - Swelling [Unknown]
  - Injection site nodule [Recovered/Resolved with Sequelae]
